FAERS Safety Report 8368329-2 (Version None)
Quarter: 2012Q2

REPORT INFORMATION
  Report Type: 
  Country: None (occurrence: None)
  Receive Date: 20120517
  Receipt Date: 20120507
  Transmission Date: 20120825
  Serious: Yes (Hospitalization, Other)
  Sender: FDA-Public Use
  Company Number: US-ELI_LILLY_AND_COMPANY-US201008000727

PATIENT
  Sex: Female

DRUGS (3)
  1. FORTEO [Suspect]
     Dosage: 20 UG, QD
     Route: 058
  2. COUMADIN [Concomitant]
  3. FORTEO [Suspect]
     Indication: OSTEOPOROSIS
     Dosage: 20 UG, QD
     Route: 058
     Dates: start: 20100101

REACTIONS (7)
  - FALL [None]
  - GASTRIC PERFORATION [None]
  - BALANCE DISORDER [None]
  - PELVIC FRACTURE [None]
  - BLOOD DISORDER [None]
  - GASTRIC HAEMORRHAGE [None]
  - FAECES DISCOLOURED [None]
